FAERS Safety Report 15054488 (Version 1)
Quarter: 2018Q2

REPORT INFORMATION
  Report Type: Spontaneous
  Country: US (occurrence: US)
  Receive Date: 20180622
  Receipt Date: 20180622
  Transmission Date: 20180711
  Serious: No
  Sender: FDA-Public Use
  Company Number: US-009507513-1806USA008710

PATIENT
  Age: 28 Year
  Sex: Female
  Weight: 104 kg

DRUGS (3)
  1. NEXPLANON [Suspect]
     Active Substance: ETONOGESTREL
     Dosage: 1 IMPLANT EVERY 3 YEARS
     Route: 059
     Dates: start: 20171109
  2. TYLENOL [Concomitant]
     Active Substance: ACETAMINOPHEN
  3. VITAMINS (UNSPECIFIED) [Concomitant]
     Active Substance: VITAMINS

REACTIONS (5)
  - Device breakage [Not Recovered/Not Resolved]
  - Implant site pain [Not Recovered/Not Resolved]
  - Device kink [Not Recovered/Not Resolved]
  - Paraesthesia [Not Recovered/Not Resolved]
  - Medical device site discomfort [Not Recovered/Not Resolved]
